FAERS Safety Report 20073404 (Version 1)
Quarter: 2021Q4

REPORT INFORMATION
  Report Type: Spontaneous
  Country: SE (occurrence: SE)
  Receive Date: 20211116
  Receipt Date: 20211116
  Transmission Date: 20220303
  Serious: Yes (Other)
  Sender: FDA-Public Use
  Company Number: SE-NOVARTISPH-NVSC2021SE253544

PATIENT
  Sex: Female

DRUGS (3)
  1. METOPROLOL [Suspect]
     Active Substance: METOPROLOL
     Indication: Product used for unknown indication
     Dosage: 150 MG
     Route: 065
     Dates: start: 2017
  2. METOPROLOL [Suspect]
     Active Substance: METOPROLOL
     Dosage: 200 MG
     Route: 065
  3. METOPROLOL [Suspect]
     Active Substance: METOPROLOL
     Dosage: 12.5 MG
     Route: 065

REACTIONS (9)
  - Arteriosclerosis coronary artery [Unknown]
  - Peripheral arterial occlusive disease [Unknown]
  - Heart rate decreased [Unknown]
  - Blood pressure diastolic decreased [Unknown]
  - Blood pressure systolic increased [Unknown]
  - Heart rate increased [Recovered/Resolved]
  - Fatigue [Unknown]
  - Intentional product use issue [Unknown]
  - Product dose omission issue [Unknown]
